FAERS Safety Report 21897229 (Version 1)
Quarter: 2023Q1

REPORT INFORMATION
  Report Type: Spontaneous
  Country: US (occurrence: US)
  Receive Date: 20230123
  Receipt Date: 20230123
  Transmission Date: 20230418
  Serious: Yes (Hospitalization)
  Sender: FDA-Public Use
  Company Number: US-PERRIGO-23US000414

PATIENT
  Age: 16 Year
  Sex: Female

DRUGS (3)
  1. IBUPROFEN [Suspect]
     Active Substance: IBUPROFEN
     Indication: Intentional self-injury
     Dosage: UNK, UNK
     Route: 048
  2. ACETAMINOPHEN [Suspect]
     Active Substance: ACETAMINOPHEN
     Indication: Intentional self-injury
     Dosage: UNK, UNK
     Route: 048
  3. UNSPECIFIED INGREDIENT [Suspect]
     Active Substance: UNSPECIFIED INGREDIENT
     Indication: Intentional self-injury
     Dosage: UNK, UNK
     Route: 065

REACTIONS (5)
  - Cardiac arrest [Recovered/Resolved]
  - Toxicity to various agents [Unknown]
  - Metabolic acidosis [Unknown]
  - Renal failure [Unknown]
  - Intentional overdose [Unknown]
